FAERS Safety Report 6438840-X (Version None)
Quarter: 2009Q4

REPORT INFORMATION
  Report Type: 
  Country: None (occurrence: None)
  Receive Date: 20091110
  Receipt Date: 20091104
  Transmission Date: 20100525
  Serious: Yes (Other)
  Sender: FDA-Public Use
  Company Number: SP02632

PATIENT
  Age: 30 Year
  Sex: Female

DRUGS (2)
  1. MOVIPREP [Suspect]
     Indication: COLONOSCOPY
     Dosage: ORAL
     Route: 048
     Dates: start: 20091102, end: 20091102
  2. ZEGERID [Concomitant]

REACTIONS (5)
  - DYSPNOEA [None]
  - HYPERHIDROSIS [None]
  - PARAESTHESIA [None]
  - PRURITUS [None]
  - RASH [None]
